FAERS Safety Report 5953562-7 (Version None)
Quarter: 2008Q4

REPORT INFORMATION
  Report Type: 
  Country: None (occurrence: None)
  Receive Date: 20081114
  Receipt Date: 20081106
  Transmission Date: 20090506
  Serious: Yes (Hospitalization)
  Sender: FDA-Public Use
  Company Number: US-CELGENEUS-163-21880-07120910

PATIENT
  Sex: Female

DRUGS (5)
  1. REVLIMID [Suspect]
     Indication: MYELODYSPLASTIC SYNDROME
     Route: 048
     Dates: start: 20071001, end: 20071201
  2. DARBEPOETIN [Concomitant]
     Route: 065
     Dates: start: 20071226
  3. NAPROSYN [Concomitant]
     Indication: PAIN
     Route: 065
     Dates: start: 20061101
  4. RED BLOOD CELLS [Concomitant]
     Dosage: 2 UNITS
     Route: 051
  5. ARANESP [Concomitant]
     Route: 065

REACTIONS (5)
  - ABDOMINAL DISCOMFORT [None]
  - CONSTIPATION [None]
  - HEPATIC HAEMATOMA [None]
  - PANCYTOPENIA [None]
  - RASH [None]
